FAERS Safety Report 7581981-4 (Version None)
Quarter: 2011Q2

REPORT INFORMATION
  Report Type: 
  Country: None (occurrence: None)
  Receive Date: 20110630
  Receipt Date: 20110622
  Transmission Date: 20111010
  Serious: Yes (Hospitalization)
  Sender: FDA-Public Use
  Company Number: US-BIOGENIDEC-2010BI016045

PATIENT
  Age: 65 Year
  Sex: Female

DRUGS (3)
  1. AVONEX [Suspect]
     Route: 030
     Dates: start: 20040801
  2. MIGRAINE HEADACH INJECTION (NOS) [Concomitant]
     Indication: MIGRAINE
  3. AVONEX [Suspect]
     Indication: MULTIPLE SCLEROSIS
     Route: 030
     Dates: start: 19980101

REACTIONS (5)
  - COORDINATION ABNORMAL [None]
  - NEPHROPATHY [None]
  - NEPHROLITHIASIS [None]
  - NAUSEA [None]
  - PAIN [None]
